FAERS Safety Report 8084336-1 (Version None)
Quarter: 2012Q1

REPORT INFORMATION
  Report Type: 
  Country: None (occurrence: None)
  Receive Date: 20120128
  Receipt Date: 20110128
  Transmission Date: 20120608
  Serious: No
  Sender: FDA-Public Use
  Company Number: US-ABBOTT-11P-163-0701643-00

PATIENT
  Sex: Female
  Weight: 87.622 kg

DRUGS (8)
  1. METHOTREXATE [Concomitant]
     Indication: RHEUMATOID ARTHRITIS
  2. FOLIC ACID [Concomitant]
     Indication: VITAMIN SUPPLEMENTATION
  3. LASIX [Concomitant]
     Indication: FLUID RETENTION
  4. PERCOCET [Concomitant]
     Indication: BACK PAIN
  5. SEROQUEL [Concomitant]
     Indication: SLEEP DISORDER THERAPY
  6. POTASSIUM [Concomitant]
     Indication: MINERAL SUPPLEMENTATION
  7. XANAX [Concomitant]
     Indication: SLEEP DISORDER THERAPY
  8. HUMIRA [Suspect]
     Indication: RHEUMATOID ARTHRITIS
     Dates: start: 20100124

REACTIONS (2)
  - INJECTION SITE PAIN [None]
  - JOINT DESTRUCTION [None]
